FAERS Safety Report 4482263-X (Version None)
Quarter: 2004Q4

REPORT INFORMATION
  Report Type: 
  Country: None (occurrence: None)
  Receive Date: 20041022
  Receipt Date: 20041018
  Transmission Date: 20050328
  Serious: Yes (Life-Threatening, Hospitalization, Other)
  Sender: FDA-Public Use
  Company Number: 200420336GDDC

PATIENT
  Age: 25 Year
  Sex: Female
  Weight: 60 kg

DRUGS (1)
  1. CLOMIPHENE CITRATE [Suspect]
     Indication: POLYCYSTIC OVARIES
     Route: 048
     Dates: end: 20040601

REACTIONS (1)
  - MYOCARDIAL INFARCTION [None]
